FAERS Safety Report 9013098 (Version 1)
Quarter: 2013Q1

REPORT INFORMATION
  Report Type: Spontaneous
  Country: JP (occurrence: JP)
  Receive Date: 20130114
  Receipt Date: 20130114
  Transmission Date: 20140127
  Serious: Yes (Other)
  Sender: FDA-Public Use
  Company Number: JP-PFIZER INC-2013009484

PATIENT
  Sex: Male

DRUGS (1)
  1. LYRICA [Suspect]
     Dosage: 75 MG/DAY
     Route: 048
     Dates: start: 2011

REACTIONS (4)
  - Loss of consciousness [Unknown]
  - Fall [Unknown]
  - Dizziness [Unknown]
  - Muscular weakness [Unknown]
